FAERS Safety Report 8585271-2 (Version None)
Quarter: 2012Q3

REPORT INFORMATION
  Report Type: 
  Country: None (occurrence: None)
  Receive Date: 20120810
  Receipt Date: 20120809
  Transmission Date: 20120928
  Serious: Yes (Other)
  Sender: FDA-Public Use
  Company Number: PHEH2012US015428

PATIENT
  Sex: Female

DRUGS (4)
  1. DITROPAN [Concomitant]
     Indication: BLADDER DISORDER
     Dosage: 1 DF, BID
     Route: 048
     Dates: start: 20091101
  2. KEPPRA [Concomitant]
     Indication: CONVULSION
     Dosage: 1 DF, BID
     Route: 048
     Dates: start: 20110201
  3. GILENYA [Suspect]
     Indication: MULTIPLE SCLEROSIS
     Dosage: 0.5 MG, QD
     Route: 048
     Dates: start: 20110801
  4. LAMICTAL [Concomitant]
     Indication: CONVULSION
     Dosage: 1 DF, BID
     Route: 048
     Dates: start: 20100101

REACTIONS (4)
  - FALL [None]
  - COMPLEX PARTIAL SEIZURES [None]
  - JOINT DISLOCATION [None]
  - CONFUSIONAL STATE [None]
